FAERS Safety Report 4467842-8 (Version None)
Quarter: 2004Q4

REPORT INFORMATION
  Report Type: 
  Country: None (occurrence: None)
  Receive Date: 20041004
  Receipt Date: 20041004
  Transmission Date: 20050328
  Serious: Yes (Other)
  Sender: FDA-Public Use
  Company Number: None

PATIENT
  Age: 9 Year
  Sex: Male
  Weight: 25.855 kg

DRUGS (4)
  1. ADVAIR DISKUS 100/50 [Suspect]
     Indication: ASTHMA
     Dosage: 1 PUFF  2 TIMES  RESPIRATOR
     Route: 055
     Dates: start: 20040913, end: 20040929
  2. ADVAIR DISKUS 100/50 [Suspect]
     Indication: COUGH
     Dosage: 1 PUFF  2 TIMES  RESPIRATOR
     Route: 055
     Dates: start: 20040913, end: 20040929
  3. ADVAIR DISKUS 100/50 [Suspect]
     Indication: HYPERSENSITIVITY
     Dosage: 1 PUFF  2 TIMES  RESPIRATOR
     Route: 055
     Dates: start: 20040913, end: 20040929
  4. ADVAIR DISKUS 100/50 [Suspect]
     Indication: WHEEZING
     Dosage: 1 PUFF  2 TIMES  RESPIRATOR
     Route: 055
     Dates: start: 20040913, end: 20040929

REACTIONS (11)
  - ABDOMINAL PAIN UPPER [None]
  - ANXIETY [None]
  - BLISTER [None]
  - DEPRESSION [None]
  - DIARRHOEA [None]
  - LIP BLISTER [None]
  - ORAL MUCOSAL BLISTERING [None]
  - PANIC ATTACK [None]
  - RASH GENERALISED [None]
  - SINUSITIS [None]
  - THROAT IRRITATION [None]
